FAERS Safety Report 13886071 (Version 11)
Quarter: 2019Q1

REPORT INFORMATION
  Report Type: Report from Study
  Country: PL (occurrence: PL)
  Receive Date: 20170821
  Receipt Date: 20190305
  Transmission Date: 20190417
  Serious: Yes (Hospitalization, Other)
  Sender: FDA-Public Use
  Company Number: PHHY2017PL119796

PATIENT
  Age: 67 Year
  Sex: Male

DRUGS (1)
  1. AFINITOR [Suspect]
     Active Substance: EVEROLIMUS
     Indication: METASTATIC RENAL CELL CARCINOMA
     Dosage: 10 MG, QD (DAILY)
     Route: 048
     Dates: start: 20170727, end: 20180418

REACTIONS (14)
  - Skin lesion [Unknown]
  - Malignant neoplasm progression [Unknown]
  - Urticaria [Unknown]
  - Erythema [Unknown]
  - Skin exfoliation [Unknown]
  - Skin warm [Unknown]
  - Rash erythematous [Unknown]
  - Thrombocytopenia [Recovered/Resolved]
  - Neutropenia [Recovered/Resolved]
  - Metastatic renal cell carcinoma [Unknown]
  - Skin disorder [Unknown]
  - Anaemia [Not Recovered/Not Resolved]
  - Leukopenia [Recovered/Resolved]
  - Oedema peripheral [Recovered/Resolved]

NARRATIVE: CASE EVENT DATE: 20170810
